FAERS Safety Report 12491877 (Version 1)
Quarter: 2016Q2

REPORT INFORMATION
  Report Type: Spontaneous
  Country: US (occurrence: None)
  Receive Date: 20160622
  Receipt Date: 20160622
  Transmission Date: 20160815
  Serious: No
  Sender: FDA-Public Use
  Company Number: None

PATIENT
  Age: 60 Year
  Sex: Female
  Weight: 79.38 kg

DRUGS (2)
  1. SMZ/TMP DS TAB 800-160 [Suspect]
     Active Substance: SULFAMETHOXAZOLE\TRIMETHOPRIM
     Indication: ARTHROPOD BITE
     Route: 048
     Dates: start: 20160613, end: 20160620
  2. DAILY VITAMIN [Concomitant]
     Active Substance: VITAMINS

REACTIONS (7)
  - Decreased appetite [None]
  - Dermatitis [None]
  - Viral infection [None]
  - Drug ineffective [None]
  - Chills [None]
  - Asthenia [None]
  - Pain [None]

NARRATIVE: CASE EVENT DATE: 20160613
